FAERS Safety Report 9470280 (Version 1)
Quarter: 2013Q3

REPORT INFORMATION
  Report Type: Spontaneous
  Country: US (occurrence: US)
  Receive Date: 20130822
  Receipt Date: 20130822
  Transmission Date: 20140515
  Serious: No
  Sender: FDA-Public Use
  Company Number: US-SANOFI-AVENTIS-2012SA048962

PATIENT
  Age: 74 Year
  Sex: Female

DRUGS (5)
  1. MULTAQ [Suspect]
     Indication: ATRIAL FIBRILLATION
     Route: 048
     Dates: start: 201106, end: 2012
  2. MULTAQ [Suspect]
     Indication: VENTRICULAR TACHYCARDIA
     Route: 048
     Dates: start: 201106, end: 2012
  3. NEXIUM [Concomitant]
     Indication: GASTRIC DISORDER
  4. ASA [Concomitant]
     Indication: PAIN
  5. SINGULAIR [Concomitant]
     Indication: RESPIRATORY DISORDER

REACTIONS (2)
  - Alopecia [Recovering/Resolving]
  - Upper respiratory tract infection [Unknown]
